FAERS Safety Report 8852868 (Version 1)
Quarter: 2012Q4

REPORT INFORMATION
  Report Type: Report from Study
  Country: ES (occurrence: ES)
  Receive Date: 20121022
  Receipt Date: 20121022
  Transmission Date: 20130627
  Serious: Yes (Hospitalization, Other)
  Sender: FDA-Public Use
  Company Number: ES-OTSUKA-EU-2012-10239

PATIENT
  Age: 65 Year
  Sex: Male

DRUGS (9)
  1. CILOSTAZOL [Suspect]
     Indication: INTERMITTENT CLAUDICATION
     Dosage: 200 Mg milligram(s), daily dose
     Route: 048
     Dates: start: 20110301, end: 20120808
  2. CILOSTAZOL [Suspect]
     Dosage: 200 Mg milligram(s), daily dose
     Route: 048
     Dates: start: 20120813
  3. LOSARTAN [Concomitant]
     Dosage: 100 Mg milligram(s), daily dose
     Dates: end: 20120808
  4. HYDROCHLOROTHIAZIDE [Concomitant]
     Dosage: 25 Mg milligram(s), daily dose
     Dates: end: 20120808
  5. ACETYLSALICYLIC ACID [Concomitant]
     Dosage: 100 Mg milligram(s), daily dose
     Dates: end: 20120808
  6. ACETYLSALICYLIC ACID [Concomitant]
     Dosage: 100 Mg milligram(s), daily dose
     Dates: start: 20120814
  7. ALOPURINOL [Concomitant]
     Dosage: 300 Mg milligram(s), daily dose
     Dates: end: 20120808
  8. ALOPURINOL [Concomitant]
     Dosage: 300 Mg milligram(s), daily dose
     Dates: start: 20120813
  9. AMLODIPINE [Concomitant]
     Dosage: UNK
     Dates: start: 20120813

REACTIONS (2)
  - Clostridium difficile colitis [Recovered/Resolved]
  - Acute prerenal failure [Recovered/Resolved]
